FAERS Safety Report 10065366 (Version 2)
Quarter: 2014Q2

REPORT INFORMATION
  Report Type: Spontaneous
  Country: SK (occurrence: SK)
  Receive Date: 20140408
  Receipt Date: 20140414
  Transmission Date: 20141212
  Serious: Yes (Hospitalization)
  Sender: FDA-Public Use
  Company Number: SK-VERTEX PHARMACEUTICALS INC-2014-001828

PATIENT
  Age: 61 Year
  Sex: Female

DRUGS (6)
  1. INCIVO [Suspect]
     Indication: CHRONIC HEPATITIS C
     Dosage: UNK
     Route: 065
     Dates: end: 20140320
  2. URSOSAN [Concomitant]
     Indication: CHRONIC HEPATITIS C
     Dates: end: 20140320
  3. RIBAVIRIN [Concomitant]
     Indication: CHRONIC HEPATITIS C
     Dates: end: 20140320
  4. INTERFERON ALFA [Concomitant]
     Indication: CHRONIC HEPATITIS C
  5. AMARYL [Concomitant]
     Indication: DIABETES MELLITUS
  6. LAGOSA [Concomitant]
     Indication: HEPATITIS C

REACTIONS (2)
  - Atrioventricular block complete [Unknown]
  - Cardiac failure [Unknown]
